FAERS Safety Report 6125895-5 (Version None)
Quarter: 2009Q1

REPORT INFORMATION
  Report Type: 
  Country: None (occurrence: None)
  Receive Date: 20090319
  Receipt Date: 20080429
  Transmission Date: 20090719
  Serious: Yes (Hospitalization)
  Sender: FDA-Public Use
  Company Number: 200813414

PATIENT
  Age: 9 Year
  Sex: Male
  Weight: 22.6799 kg

DRUGS (3)
  1. VIVAGLOBIN [Suspect]
     Indication: HYPOGAMMAGLOBULINAEMIA
     Dosage: 16 ML Q1W SC, SC
     Route: 058
     Dates: start: 20080428, end: 20080428
  2. VIVAGLOBIN [Suspect]
     Indication: HYPOGAMMAGLOBULINAEMIA
     Dosage: 16 ML Q1W SC, SC
     Route: 058
     Dates: start: 20080428, end: 20080428
  3. VIVAGLOBIN [Suspect]

REACTIONS (3)
  - INFUSION SITE EXTRAVASATION [None]
  - INFUSION SITE PAIN [None]
  - INJECTION SITE SWELLING [None]
